FAERS Safety Report 4766005-6 (Version None)
Quarter: 2005Q3

REPORT INFORMATION
  Report Type: 
  Country: None (occurrence: None)
  Receive Date: 20050912
  Receipt Date: 20050831
  Transmission Date: 20060218
  Serious: Yes (Other)
  Sender: FDA-Public Use
  Company Number: CR-GLAXOSMITHKLINE-A0573536A

PATIENT
  Age: 30 Year
  Sex: Female

DRUGS (3)
  1. ZANTAC [Suspect]
     Indication: DRUG USE FOR UNKNOWN INDICATION
     Dosage: 300MG PER DAY
     Route: 065
  2. ALLEGRA [Concomitant]
     Dosage: 180MG PER DAY
     Route: 065
  3. UNKNOWN MEDICATION [Concomitant]

REACTIONS (8)
  - CHEILITIS [None]
  - DRUG HYPERSENSITIVITY [None]
  - ERYTHEMA [None]
  - INFLAMMATION [None]
  - RESPIRATORY DISORDER [None]
  - SKIN INFLAMMATION [None]
  - STOMATITIS [None]
  - URTICARIA [None]
